FAERS Safety Report 6648474-X (Version None)
Quarter: 2010Q1

REPORT INFORMATION
  Report Type: 
  Country: None (occurrence: None)
  Receive Date: 20100319
  Receipt Date: 20100317
  Transmission Date: 20100710
  Serious: Yes (Hospitalization)
  Sender: FDA-Public Use
  Company Number: 1000012360

PATIENT
  Sex: Female

DRUGS (3)
  1. CITALOPRAM (CITALOPRAM HYDROBROMIDE) (20 MILLIGRAM, TABLETS) [Suspect]
     Dosage: 14-15 TABLETS ONCE, ORAL
     Route: 048
     Dates: start: 20100303, end: 20100303
  2. SLEEPING TABLETS (TABLETS) [Suspect]
     Dosage: 6 DOSAGE FORMS, ONCE, ORAL
     Route: 048
     Dates: start: 20100303, end: 20100303
  3. CO-CODAMOL (TABLETS) [Suspect]
     Dosage: ONCE, ORAL
     Route: 048
     Dates: start: 20100303, end: 20100303

REACTIONS (4)
  - BLOOD PRESSURE INCREASED [None]
  - ELECTROCARDIOGRAM ABNORMAL [None]
  - MULTIPLE DRUG OVERDOSE [None]
  - VOMITING [None]
